FAERS Safety Report 18208637 (Version 11)
Quarter: 2020Q4

REPORT INFORMATION
  Report Type: Spontaneous
  Country: US (occurrence: US)
  Receive Date: 20200828
  Receipt Date: 20201230
  Transmission Date: 20210113
  Serious: No
  Sender: FDA-Public Use
  Company Number: US-PFIZER INC-2020334461

PATIENT
  Age: 63 Year
  Sex: Male

DRUGS (1)
  1. SILDENAFIL CITRATE. [Suspect]
     Active Substance: SILDENAFIL CITRATE
     Indication: ERECTILE DYSFUNCTION
     Dosage: UNK; (USE TWO OF THE GREENSTONE TO EQUAL ONE OF THE VIAGRA)
     Route: 048

REACTIONS (2)
  - Drug ineffective [Unknown]
  - Therapeutic product effect variable [Unknown]
